FAERS Safety Report 8764616 (Version 1)
Quarter: 2012Q4

REPORT INFORMATION
  Report Type: 
  Country: CU (occurrence: CU)
  Receive Date: 20120831
  Receipt Date: 20120831
  Transmission Date: 20130627
  Serious: Yes (Hospitalization, Other)
  Sender: FDA-Public Use
  Company Number: CU-ABBOTT-12P-036-0974603-00

PATIENT
  Age: 20 Year
  Sex: Male

DRUGS (14)
  1. VALPROIC ACID [Suspect]
     Indication: LENNOX-GASTAUT SYNDROME
  2. VALPROIC ACID [Suspect]
  3. PHENOBARBITAL [Suspect]
     Indication: LENNOX-GASTAUT SYNDROME
  4. LACOSAMIDE [Suspect]
     Indication: LENNOX-GASTAUT SYNDROME
     Route: 042
  5. TOPIRAMATE [Suspect]
     Indication: LENNOX-GASTAUT SYNDROME
  6. LEVETIRACETAM [Suspect]
     Indication: LENNOX-GASTAUT SYNDROME
  7. PHENYTOIN [Suspect]
     Indication: LENNOX-GASTAUT SYNDROME
  8. PHENYTOIN [Suspect]
  9. CLONAZEPAM [Suspect]
     Indication: LENNOX-GASTAUT SYNDROME
  10. RISPERIDONE [Suspect]
     Indication: LENNOX-GASTAUT SYNDROME
  11. VIGABATRIN [Suspect]
     Indication: LENNOX-GASTAUT SYNDROME
  12. CLOBAZAM [Suspect]
     Indication: LENNOX-GASTAUT SYNDROME
  13. CARBAMAZEPINE [Suspect]
     Indication: LENNOX-GASTAUT SYNDROME
  14. CARBAMAZEPINE [Suspect]

REACTIONS (4)
  - Epilepsy [Recovered/Resolved]
  - Tonic convulsion [Recovered/Resolved]
  - Drug ineffective [Not Recovered/Not Resolved]
  - Toxicity to various agents [Recovered/Resolved]
